FAERS Safety Report 16100902 (Version 1)
Quarter: 2019Q1

REPORT INFORMATION
  Report Type: Spontaneous
  Country: IT (occurrence: IT)
  Receive Date: 20190321
  Receipt Date: 20190321
  Transmission Date: 20190418
  Serious: Yes (Hospitalization)
  Sender: FDA-Public Use
  Company Number: IT-MYLANLABS-2019M1025470

PATIENT
  Age: 3 Year
  Sex: Female

DRUGS (5)
  1. AMOXICILLIN. [Suspect]
     Active Substance: AMOXICILLIN
     Indication: PHARYNGITIS
     Dosage: UNK
  2. ROKITAMYCIN [Suspect]
     Active Substance: ROKITAMYCIN
     Indication: PHARYNGITIS
  3. FUSIDIC ACID [Suspect]
     Active Substance: FUSIDIC ACID
     Indication: PHARYNGITIS
     Dosage: UNK
  4. FLURBIPROFEN. [Suspect]
     Active Substance: FLURBIPROFEN
     Indication: PHARYNGITIS
     Dosage: UNK
  5. MORNIFLUMATE [Suspect]
     Active Substance: MORNIFLUMATE
     Indication: PHARYNGITIS
     Dosage: UNK

REACTIONS (1)
  - Vasculitis [Unknown]
